FAERS Safety Report 16688043 (Version 2)
Quarter: 2019Q3

REPORT INFORMATION
  Report Type: Spontaneous
  Country: US (occurrence: US)
  Receive Date: 20190809
  Receipt Date: 20190916
  Transmission Date: 20191004
  Serious: No
  Sender: FDA-Public Use
  Company Number: US-JNJFOC-20190743356

PATIENT
  Age: 77 Year
  Sex: Female
  Weight: 90.8 kg

DRUGS (13)
  1. ATORVASTATIN CALCIUM. [Concomitant]
     Active Substance: ATORVASTATIN CALCIUM
  2. CARTIA                             /00002701/ [Concomitant]
     Active Substance: ASPIRIN
  3. LACTULOSE. [Concomitant]
     Active Substance: LACTULOSE
  4. RAMIPRIL. [Concomitant]
     Active Substance: RAMIPRIL
     Dosage: 2.5 DAILY
  5. SYNTHROID [Concomitant]
     Active Substance: LEVOTHYROXINE SODIUM
  6. VITAMIN D3 [Concomitant]
     Active Substance: CHOLECALCIFEROL
     Dosage: DOSE: 5000
  7. MIRALAX [Concomitant]
     Active Substance: POLYETHYLENE GLYCOL 3350
  8. XARELTO [Suspect]
     Active Substance: RIVAROXABAN
     Indication: CEREBROVASCULAR ACCIDENT PROPHYLAXIS
     Dosage: SERIAL NO: 100008640258
     Route: 048
  9. VITAMIN B12 [Concomitant]
     Active Substance: CYANOCOBALAMIN
  10. XARELTO [Suspect]
     Active Substance: RIVAROXABAN
     Dosage: SERIAL NO: 100008643418
     Route: 048
  11. ALTACE [Concomitant]
     Active Substance: RAMIPRIL
  12. XARELTO [Suspect]
     Active Substance: RIVAROXABAN
     Indication: ATRIAL FIBRILLATION
     Dosage: SERIAL NO: 100008641015?PRESCRIPTION NO: 112324904968
     Route: 048
     Dates: start: 201606
  13. CLOBETASOL [Concomitant]
     Active Substance: CLOBETASOL

REACTIONS (3)
  - Monoclonal gammopathy [Not Recovered/Not Resolved]
  - Thyroid disorder [Not Recovered/Not Resolved]
  - Product contamination physical [Unknown]

NARRATIVE: CASE EVENT DATE: 2018
